FAERS Safety Report 9501758 (Version 1)
Quarter: 2013Q1

REPORT INFORMATION
  Report Type: Spontaneous
  Country: US (occurrence: None)
  Receive Date: 20130107
  Receipt Date: 20130107
  Transmission Date: 20140127
  Serious: No
  Sender: FDA-Public Use
  Company Number: PHEH2012US018217

PATIENT
  Age: 20 Year
  Sex: Male
  Weight: 65.8 kg

DRUGS (2)
  1. GILENYA (FTY) CAPSULE, 0.5MG [Suspect]
     Route: 048
  2. VITAMIN D [Concomitant]

REACTIONS (3)
  - Memory impairment [None]
  - Paraesthesia [None]
  - Cough [None]
